FAERS Safety Report 4382228-2 (Version None)
Quarter: 2004Q2

REPORT INFORMATION
  Report Type: 
  Country: None (occurrence: None)
  Receive Date: 20040616
  Receipt Date: 20040602
  Transmission Date: 20050107
  Serious: Yes (Death, Life-Threatening, Hospitalization, Disabling)
  Sender: FDA-Public Use
  Company Number: 2004-BP-01825YA

PATIENT
  Age: 70 Year
  Sex: Male

DRUGS (4)
  1. HARNAL (TAMSULOSIN) (NR) [Suspect]
     Indication: BENIGN PROSTATIC HYPERPLASIA
     Dosage: SEE TEXT 1 DF AM) PO
     Route: 048
     Dates: start: 20020101, end: 20040105
  2. URSODEOXYCHOLIC [Concomitant]
  3. ACID (URSODEOXYCHOLIC ACID) [Concomitant]
  4. LACTULOSE [Concomitant]

REACTIONS (2)
  - HEPATIC FAILURE [None]
  - PYREXIA [None]
